FAERS Safety Report 24167552 (Version 1)
Quarter: 2024Q3

REPORT INFORMATION
  Report Type: Spontaneous
  Country: PL (occurrence: PL)
  Receive Date: 20240802
  Receipt Date: 20240802
  Transmission Date: 20241016
  Serious: Yes (Life-Threatening)
  Sender: NOVARTIS
  Company Number: None

PATIENT
  Age: 31 Year
  Sex: Female
  Weight: 93 kg

DRUGS (2)
  1. TEGRETOL XR [Suspect]
     Active Substance: CARBAMAZEPINE
     Indication: Product used for unknown indication
     Dosage: UNK, ABOUT 10 TABLETS HAVE BEEN TAKEN
     Route: 048
     Dates: start: 20200430
  2. CHLORPROTHIXENE [Suspect]
     Active Substance: CHLORPROTHIXENE
     Indication: Product used for unknown indication
     Dosage: UNK (ABOUT 20 TABLETS HAVE BEEN TAKEN)
     Route: 048
     Dates: start: 20200430

REACTIONS (5)
  - Psychomotor retardation [Recovered/Resolved]
  - Balance disorder [Recovered/Resolved]
  - Somnolence [Recovered/Resolved]
  - Suicide attempt [Recovered/Resolved]
  - Depressed mood [Recovered/Resolved]
